FAERS Safety Report 10165824 (Version 3)
Quarter: 2014Q4

REPORT INFORMATION
  Report Type: Spontaneous
  Country: US (occurrence: US)
  Receive Date: 20140510
  Receipt Date: 20141205
  Transmission Date: 20150528
  Serious: No
  Sender: FDA-Public Use
  Company Number: US-BRISTOL-MYERS SQUIBB COMPANY-19972603

PATIENT
  Age: 55 Year
  Sex: Female
  Weight: 86.62 kg

DRUGS (4)
  1. LANTUS [Concomitant]
     Active Substance: INSULIN GLARGINE
  2. BYDUREON [Suspect]
     Active Substance: EXENATIDE
     Indication: TYPE 2 DIABETES MELLITUS
     Dosage: LOT:73777 EXPDT:JUN16
     Route: 058
     Dates: start: 20131223
  3. VERAPAMIL [Concomitant]
     Active Substance: VERAPAMIL HYDROCHLORIDE
  4. METFORMIN [Concomitant]
     Active Substance: METFORMIN HYDROCHLORIDE

REACTIONS (6)
  - Injection site extravasation [Unknown]
  - Drug dose omission [Unknown]
  - Injection site nodule [Unknown]
  - Injection site pain [Unknown]
  - Injection site haemorrhage [Unknown]
  - Fatigue [Unknown]
